FAERS Safety Report 25546468 (Version 1)
Quarter: 2025Q3

REPORT INFORMATION
  Report Type: Spontaneous
  Country: EU (occurrence: EU)
  Receive Date: 20250713
  Receipt Date: 20250713
  Transmission Date: 20251020
  Serious: Yes (Death)
  Sender: SERVIER
  Company Number: None

PATIENT

DRUGS (2)
  1. TIBSOVO [Suspect]
     Active Substance: IVOSIDENIB
     Indication: Acute myeloid leukaemia
     Dosage: 250 MG, BID
     Route: 048
     Dates: start: 20250320, end: 20250325
  2. VIDAZA [Concomitant]
     Active Substance: AZACITIDINE
     Indication: Acute myeloid leukaemia
     Dosage: 157 MG, QD
     Route: 058
     Dates: start: 20250320, end: 20250325

REACTIONS (3)
  - Differentiation syndrome [Fatal]
  - Condition aggravated [Fatal]
  - Transfusion [Fatal]

NARRATIVE: CASE EVENT DATE: 20250324
